FAERS Safety Report 8791115 (Version 1)
Quarter: 2012Q4

REPORT INFORMATION
  Report Type: Spontaneous
  Country: US (occurrence: None)
  Receive Date: 20120913
  Receipt Date: 20120913
  Transmission Date: 20130627
  Serious: Yes (Other)
  Sender: FDA-Public Use
  Company Number: None

PATIENT
  Age: 50 Year
  Sex: Male
  Weight: 100.25 kg

DRUGS (2)
  1. SIMVASTATIN [Suspect]
     Indication: HYPERLIPIDEMIA
     Route: 048
     Dates: start: 20090518, end: 20120801
  2. SIMVASTATIN [Suspect]
     Route: 048
     Dates: start: 20071107, end: 20110501

REACTIONS (2)
  - Muscular weakness [None]
  - Amnesia [None]
